FAERS Safety Report 22966222 (Version 2)
Quarter: 2023Q4

REPORT INFORMATION
  Report Type: Report from Study
  Country: US (occurrence: US)
  Receive Date: 20230921
  Receipt Date: 20231006
  Transmission Date: 20240109
  Serious: Yes (Hospitalization)
  Sender: FDA-Public Use
  Company Number: US-PFIZER INC-PV202300155584

PATIENT
  Age: 78 Year
  Sex: Male
  Weight: 81.859 kg

DRUGS (1)
  1. TALZENNA [Suspect]
     Active Substance: TALAZOPARIB TOSYLATE
     Dosage: 0.8 MG, DAILY
     Route: 048

REACTIONS (1)
  - Hypoxia [Not Recovered/Not Resolved]
